FAERS Safety Report 7563277-X (Version None)
Quarter: 2011Q2

REPORT INFORMATION
  Report Type: 
  Country: None (occurrence: None)
  Receive Date: 20110622
  Receipt Date: 20110613
  Transmission Date: 20111010
  Serious: Yes (Life-Threatening, Other)
  Sender: FDA-Public Use
  Company Number: JP-ASTRAZENECA-2011SE34164

PATIENT
  Age: 19394 Day
  Sex: Male

DRUGS (8)
  1. MEROPENEM [Suspect]
     Indication: PNEUMONIA
     Route: 042
     Dates: start: 20110525
  2. NEO-MINOPHAGEN C [Concomitant]
     Indication: HEPATITIS C
     Route: 042
     Dates: start: 20110417
  3. MAGMITT [Concomitant]
     Indication: CONSTIPATION
     Route: 048
     Dates: start: 20110418, end: 20110526
  4. TRANSAMIN [Concomitant]
     Indication: HAEMORRHAGIC DIATHESIS
     Route: 042
     Dates: start: 20110402
  5. PREDNISOLONE [Concomitant]
  6. URSO 250 [Suspect]
     Route: 048
  7. DECADRON [Concomitant]
     Indication: DRUG ERUPTION
     Route: 048
     Dates: start: 20110516, end: 20110526
  8. SULFAMETHOXAZOLE [Suspect]
     Route: 048

REACTIONS (1)
  - ANAPHYLACTIC SHOCK [None]
